FAERS Safety Report 6848151-6 (Version None)
Quarter: 2010Q3

REPORT INFORMATION
  Report Type: 
  Country: None (occurrence: None)
  Receive Date: 20100716
  Receipt Date: 20100713
  Transmission Date: 20110219
  Serious: Yes (Hospitalization)
  Sender: FDA-Public Use
  Company Number: A0870513A

PATIENT
  Age: 51 Year
  Sex: Female

DRUGS (1)
  1. PROMACTA [Suspect]
     Indication: HEPATITIS C
     Dosage: 25MG PER DAY
     Route: 048
     Dates: start: 20100128, end: 20100412

REACTIONS (2)
  - EPISTAXIS [None]
  - PLATELET COUNT INCREASED [None]
